FAERS Safety Report 5145009-8 (Version None)
Quarter: 2006Q4

REPORT INFORMATION
  Report Type: 
  Country: None (occurrence: None)
  Receive Date: 20061107
  Receipt Date: 20061010
  Transmission Date: 20070319
  Serious: Yes (Hospitalization)
  Sender: FDA-Public Use
  Company Number: US-AVENTIS-200620717GDDC

PATIENT
  Age: 65 Year
  Sex: Male
  Weight: 102.06 kg

DRUGS (5)
  1. TAXOTERE [Suspect]
     Dosage: DOSE: UNK
     Route: 042
     Dates: start: 20061004, end: 20061004
  2. LUPRON [Suspect]
     Dates: start: 20060721
  3. RADIATION THERAPY [Suspect]
     Dosage: DOSE: UNK
     Dates: end: 20061006
  4. CASODEX [Suspect]
  5. DEXAMETHASONE TAB [Concomitant]
     Dosage: DOSE: UNK
     Dates: start: 20061003, end: 20061004

REACTIONS (2)
  - FALL [None]
  - HIP FRACTURE [None]
